FAERS Safety Report 9560012 (Version 2)
Quarter: 2013Q4

REPORT INFORMATION
  Report Type: Spontaneous
  Country: AU (occurrence: None)
  Receive Date: 20130925
  Receipt Date: 20131125
  Transmission Date: 20140711
  Serious: Yes (Other)
  Sender: FDA-Public Use
  Company Number: 7236989

PATIENT
  Age: 72 Year
  Sex: Female

DRUGS (6)
  1. THYROXIN (LEVOTHYROXINE) (LEVOTHYROXINE [Suspect]
     Indication: PRODUCT USED FOR UNKNOWN INDICATION
  2. LITHIUM [Suspect]
     Dates: start: 1993, end: 2005
  3. ARIPIPRAZOLE (ARIPRAZOLE) (ARIPIPRAZOLE) [Concomitant]
  4. SODIUM VALPROATE (VALPROATE SODIUM) (VALPROATE SODIUM) [Concomitant]
  5. ATORVASTATIN (ATORVASTATIN) (ATORVASTATIN) [Concomitant]
  6. HYDROCHLOROTHIAZIDE W/TELMISARTAN (PRITOR) (HYDROCHLOROOTHIAZIDE TELMISARTAN) [Concomitant]

REACTIONS (5)
  - Renal cell carcinoma [None]
  - Acquired cystic kidney disease [None]
  - Hypertension [None]
  - Toxicity to various agents [None]
  - Nephropathy toxic [None]
